FAERS Safety Report 13545337 (Version 1)
Quarter: 2017Q2

REPORT INFORMATION
  Report Type: Spontaneous
  Country: RU (occurrence: RU)
  Receive Date: 20170515
  Receipt Date: 20170515
  Transmission Date: 20170830
  Serious: Yes (Hospitalization)
  Sender: FDA-Public Use
  Company Number: RU-ASTRAZENECA-2017SE50672

PATIENT
  Age: 64 Year
  Sex: Female
  Weight: 62 kg

DRUGS (7)
  1. ROSUVASTATIN. [Concomitant]
     Active Substance: ROSUVASTATIN
  2. BRILINTA [Suspect]
     Active Substance: TICAGRELOR
     Indication: MYOCARDIAL INFARCTION
     Route: 048
     Dates: start: 201701
  3. OMEPRAZOLE. [Concomitant]
     Active Substance: OMEPRAZOLE
  4. THROMBO ASS [Concomitant]
     Active Substance: ASPIRIN
  5. PHYSIOTENS [Concomitant]
     Active Substance: MOXONIDINE
     Dosage: 0.4 MG
  6. BRILINTA [Suspect]
     Active Substance: TICAGRELOR
     Indication: STENT PLACEMENT
     Route: 048
     Dates: start: 201701
  7. BETALOC [Concomitant]
     Active Substance: METOPROLOL TARTRATE

REACTIONS (2)
  - Blood pressure increased [Unknown]
  - Contusion [Not Recovered/Not Resolved]

NARRATIVE: CASE EVENT DATE: 201702
